FAERS Safety Report 6300083-8 (Version None)
Quarter: 2009Q3

REPORT INFORMATION
  Report Type: 
  Country: None (occurrence: None)
  Receive Date: 20090803
  Receipt Date: 20090720
  Transmission Date: 20100115
  Serious: Yes (Death)
  Sender: FDA-Public Use
  Company Number: ADR8912009

PATIENT
  Age: 79 Year
  Sex: Male

DRUGS (6)
  1. ALENDRONIC ACID (MFR: UNKNOWN) [Suspect]
     Dosage: 70MG/WEEK ORAL
     Route: 048
     Dates: start: 20081114
  2. ACETYLCYSTEINE [Concomitant]
  3. AXATHIOPRINE [Concomitant]
  4. OMEPRAZOLE [Concomitant]
  5. PREDNISOLONE [Concomitant]
  6. WARFARIN [Concomitant]

REACTIONS (3)
  - NEUTROPENIA [None]
  - SEPSIS [None]
  - TOXIC EPIDERMAL NECROLYSIS [None]
